FAERS Safety Report 5464709-3 (Version None)
Quarter: 2007Q3

REPORT INFORMATION
  Report Type: 
  Country: None (occurrence: None)
  Receive Date: 20070921
  Receipt Date: 20070912
  Transmission Date: 20080115
  Serious: Yes (Other)
  Sender: FDA-Public Use
  Company Number: US-PFIZER INC-2007034151

PATIENT
  Sex: Female
  Weight: 68 kg

DRUGS (3)
  1. LYRICA [Suspect]
     Indication: ROAD TRAFFIC ACCIDENT
  2. GABAPENTIN [Suspect]
     Indication: DEPRESSION
     Dosage: DAILY DOSE:3000MG
  3. NEURONTIN [Suspect]

REACTIONS (3)
  - ABASIA [None]
  - DIZZINESS [None]
  - TRANSIENT ISCHAEMIC ATTACK [None]
